FAERS Safety Report 5287120-7 (Version None)
Quarter: 2007Q2

REPORT INFORMATION
  Report Type: 
  Country: None (occurrence: None)
  Receive Date: 20070404
  Receipt Date: 20070328
  Transmission Date: 20071010
  Serious: Yes (Hospitalization)
  Sender: FDA-Public Use
  Company Number: FR-PFIZER INC-2007014302

PATIENT
  Sex: Male

DRUGS (7)
  1. ADRIBLASTINE [Suspect]
     Route: 042
     Dates: start: 20061023, end: 20061127
  2. BLEOMYCIN [Suspect]
     Route: 042
     Dates: start: 20061023, end: 20061127
  3. PROCARBAZINE [Suspect]
     Dosage: TEXT:4 DF
     Route: 048
     Dates: start: 20061023, end: 20061204
  4. VELBE [Suspect]
     Route: 042
     Dates: start: 20061023, end: 20061127
  5. METHYLPREDNISOLONE 16MG TAB [Concomitant]
     Route: 042
     Dates: start: 20061023, end: 20061127
  6. PREDNISOLONE SODIUM SULFOBENZOATE [Concomitant]
     Route: 048
     Dates: start: 20061024, end: 20061210
  7. VINBLASTINE SULFATE [Concomitant]
     Route: 042
     Dates: start: 20061023, end: 20061127

REACTIONS (3)
  - ANAEMIA [None]
  - HEPATITIS CHOLESTATIC [None]
  - LEUKOPENIA [None]
